FAERS Safety Report 12857882 (Version 1)
Quarter: 2016Q4

REPORT INFORMATION
  Report Type: Spontaneous
  Country: US (occurrence: US)
  Receive Date: 20161018
  Receipt Date: 20161018
  Transmission Date: 20170207
  Serious: No
  Sender: FDA-Public Use
  Company Number: US-SA-2015SA210815

PATIENT
  Age: 25 Year

DRUGS (1)
  1. LEMTRADA [Suspect]
     Active Substance: ALEMTUZUMAB
     Route: 042

REACTIONS (6)
  - Impaired driving ability [Unknown]
  - Fatigue [Unknown]
  - Vertigo [Unknown]
  - Fall [Unknown]
  - Malaise [Unknown]
  - Gait disturbance [Unknown]
